FAERS Safety Report 15550684 (Version 2)
Quarter: 2018Q4

REPORT INFORMATION
  Report Type: Spontaneous
  Country: LB (occurrence: LB)
  Receive Date: 20181025
  Receipt Date: 20181112
  Transmission Date: 20190205
  Serious: Yes (Hospitalization)
  Sender: FDA-Public Use
  Company Number: LB-JNJFOC-20181032863

PATIENT
  Age: 65 Year
  Sex: Male
  Weight: 60 kg

DRUGS (2)
  1. REMICADE [Suspect]
     Active Substance: INFLIXIMAB
     Indication: CROHN^S DISEASE
     Route: 042
     Dates: start: 20181001
  2. REMICADE [Suspect]
     Active Substance: INFLIXIMAB
     Indication: CROHN^S DISEASE
     Route: 042
     Dates: start: 20181015, end: 20181015

REACTIONS (1)
  - Embolism [Not Recovered/Not Resolved]

NARRATIVE: CASE EVENT DATE: 20181020
